FAERS Safety Report 18645047 (Version 1)
Quarter: 2020Q4

REPORT INFORMATION
  Report Type: Spontaneous
  Country: US (occurrence: US)
  Receive Date: 20201221
  Receipt Date: 20201221
  Transmission Date: 20210114
  Serious: Yes (Death, Other)
  Sender: FDA-Public Use
  Company Number: US-AMNEAL PHARMACEUTICALS-2020-AMRX-03961

PATIENT
  Sex: Male

DRUGS (1)
  1. HYDROXYCHLOROQUINE SULFATE. [Suspect]
     Active Substance: HYDROXYCHLOROQUINE SULFATE
     Indication: COVID-19
     Dosage: 200 MILLIGRAM, 2X/DAY
     Route: 065

REACTIONS (2)
  - Electrocardiogram QT prolonged [Unknown]
  - Acute kidney injury [Fatal]

NARRATIVE: CASE EVENT DATE: 2020
